FAERS Safety Report 23542603 (Version 1)
Quarter: 2024Q1

REPORT INFORMATION
  Report Type: Spontaneous
  Country: IT (occurrence: None)
  Receive Date: 20240220
  Receipt Date: 20240220
  Transmission Date: 20240409
  Serious: Yes (Life-Threatening)
  Sender: FDA-Public Use
  Company Number: 2024A038830

PATIENT
  Age: 52 Year
  Sex: Male
  Weight: 115 kg

DRUGS (4)
  1. XIGDUO XR [Suspect]
     Active Substance: DAPAGLIFLOZIN PROPANEDIOL\METFORMIN HYDROCHLORIDE
     Indication: Diabetes mellitus
     Dosage: 5 MG/ 1000 MG FOR TWO DAYS
     Route: 048
     Dates: start: 20220101, end: 20240209
  2. TRULICITY [Concomitant]
     Active Substance: DULAGLUTIDE
  3. RAMIPRIL [Concomitant]
     Active Substance: RAMIPRIL
  4. LEVOTHYROXINE SODIUM [Concomitant]
     Active Substance: LEVOTHYROXINE SODIUM

REACTIONS (5)
  - Fournier^s gangrene [Not Recovered/Not Resolved]
  - Testicular swelling [Not Recovered/Not Resolved]
  - Euglycaemic diabetic ketoacidosis [Not Recovered/Not Resolved]
  - Decreased appetite [Not Recovered/Not Resolved]
  - Asthenia [Not Recovered/Not Resolved]

NARRATIVE: CASE EVENT DATE: 20240130
